FAERS Safety Report 7637891-7 (Version None)
Quarter: 2011Q3

REPORT INFORMATION
  Report Type: 
  Country: None (occurrence: None)
  Receive Date: 20110727
  Receipt Date: 20110719
  Transmission Date: 20111222
  Serious: Yes (Life-Threatening, Other)
  Sender: FDA-Public Use
  Company Number: US-ASTRAZENECA-2011SE30820

PATIENT
  Age: 65 Year
  Sex: Female
  Weight: 71.6 kg

DRUGS (9)
  1. ADVAIR DISKUS 100/50 [Concomitant]
     Indication: ASTHMA
     Dosage: TWO TIMES A DAY
     Dates: start: 20090626
  2. NEXIUM [Suspect]
     Indication: PROPHYLAXIS AGAINST GASTROINTESTINAL ULCER
     Route: 048
     Dates: start: 20080207, end: 20110313
  3. CELECOXIB [Suspect]
     Indication: OSTEOARTHRITIS
     Route: 048
     Dates: start: 20080207, end: 20110313
  4. COZAAR [Concomitant]
     Dates: start: 20110310
  5. CELECOXIB [Suspect]
     Indication: RHEUMATOID ARTHRITIS
     Route: 048
     Dates: start: 20080207, end: 20110313
  6. NEXIUM [Suspect]
     Dosage: RESTARTED
     Route: 048
  7. NEURONTIN [Concomitant]
     Dates: start: 20110310
  8. SIMVASTATIN [Concomitant]
     Dates: start: 20110310
  9. MONTELUKAST SODIUM [Concomitant]
     Indication: ASTHMA

REACTIONS (1)
  - LUNG CARCINOMA CELL TYPE UNSPECIFIED STAGE IV [None]
